FAERS Safety Report 10946398 (Version 1)
Quarter: 2015Q1

REPORT INFORMATION
  Report Type: Spontaneous
  Country: None (occurrence: None)
  Receive Date: 20150226
  Receipt Date: 20150226
  Transmission Date: 20150721
  Serious: No
  Sender: FDA-Public Use
  Company Number: TPA2010A05534

PATIENT
  Age: 81 Year
  Sex: Female
  Weight: 58.97 kg

DRUGS (5)
  1. MILTIVITAMIN (ERGOCALCIFEROL, ASCORBIC ACID, FOLIC ACID, THIAMINE HYDROCHLORIDE, RETINOL, RIBOFLAVIN, NICOTINAMIDE, PANTHENOL) [Concomitant]
  2. ULORIC [Suspect]
     Active Substance: FEBUXOSTAT
     Indication: BLOOD URIC ACID INCREASED
     Route: 048
     Dates: start: 201009, end: 20101020
  3. TRIAMTER/HCTZ (ALL OTHER THERAPEUTIC PRODUCT) [Concomitant]
  4. VITAMIN B (VITAMIN B) [Concomitant]
  5. VITAMIN D (ERGOCALCIFEROL) [Concomitant]
     Active Substance: ERGOCALCIFEROL

REACTIONS (2)
  - Dry skin [None]
  - Rash pruritic [None]

NARRATIVE: CASE EVENT DATE: 2010
